FAERS Safety Report 6587673-2 (Version None)
Quarter: 2010Q1

REPORT INFORMATION
  Report Type: 
  Country: None (occurrence: None)
  Receive Date: 20100204
  Receipt Date: 20100126
  Transmission Date: 20100710
  Serious: Yes (Disabling)
  Sender: FDA-Public Use
  Company Number: ABCOL-10-0034

PATIENT
  Age: 60 Year
  Sex: Female

DRUGS (4)
  1. ABRAXANE [Suspect]
     Indication: BREAST CANCER
     Dates: start: 20090801, end: 20091211
  2. COZAAR [Suspect]
     Indication: DRUG USE FOR UNKNOWN INDICATION
  3. ASPIRIN [Concomitant]
  4. COUMADIN [Concomitant]

REACTIONS (1)
  - MACULAR OEDEMA [None]
